FAERS Safety Report 5402008-6 (Version None)
Quarter: 2007Q3

REPORT INFORMATION
  Report Type: 
  Country: None (occurrence: None)
  Receive Date: 20070726
  Receipt Date: 20070718
  Transmission Date: 20080115
  Serious: Yes (Hospitalization)
  Sender: FDA-Public Use
  Company Number: CHNY2007GB02409

PATIENT
  Age: 72 Year
  Sex: Female

DRUGS (9)
  1. NICOTINE [Suspect]
     Indication: SMOKING CESSATION THERAPY
     Dosage: 21 MG, QD, TRANSDERMAL
     Route: 062
     Dates: start: 20070701
  2. PREDNISOLONE [Concomitant]
  3. BECLOMETHASONE DIPROPIONATE [Concomitant]
  4. SALBUTAMOL (SALBUTAMOL) [Concomitant]
  5. FRUSEDMIDE (FUROSEMIDE) [Concomitant]
  6. DIHYDROCODEINE (DIHYROCODEINE) [Concomitant]
  7. PLAVIX [Concomitant]
  8. OMEPRAZOLE [Concomitant]
  9. CLOPIDOGREL [Concomitant]

REACTIONS (4)
  - AGITATION [None]
  - ANXIETY [None]
  - IRRITABILITY [None]
  - NICOTINE DEPENDENCE [None]
